FAERS Safety Report 7450275-X (Version None)
Quarter: 2011Q2

REPORT INFORMATION
  Report Type: 
  Country: None (occurrence: None)
  Receive Date: 20110422
  Receipt Date: 20110408
  Transmission Date: 20111010
  Serious: Yes (Hospitalization)
  Sender: FDA-Public Use
  Company Number: FRP11000232

PATIENT
  Age: 59 Year
  Sex: Male

DRUGS (9)
  1. LORAZEPAM [Concomitant]
  2. TRIATEC (CODEINE PHOSPHATE, PARACETAMOL) [Concomitant]
  3. LASIX [Concomitant]
  4. FIVASA (MESALAZINE) [Concomitant]
  5. DIDRONEL [Suspect]
     Dosage: 400 MG, 2 CD/MONTH, ORAL
     Route: 048
     Dates: start: 20070215, end: 20100501
  6. ESCITALOPRAM [Concomitant]
  7. BETNESOL (BETHAMETHASONE SODIUM PHOSPHATE) [Concomitant]
  8. REMICADE [Suspect]
     Dosage: IV NOS
     Route: 042
     Dates: start: 20100406, end: 20100907
  9. ATENOLOL [Concomitant]

REACTIONS (11)
  - PROTEIN TOTAL DECREASED [None]
  - WEIGHT INCREASED [None]
  - VOMITING [None]
  - HYPOALBUMINAEMIA [None]
  - NEPHROTIC SYNDROME [None]
  - HAEMATURIA [None]
  - RENAL FAILURE ACUTE [None]
  - BLOOD CREATININE INCREASED [None]
  - CHEST DISCOMFORT [None]
  - RENAL HYPERTROPHY [None]
  - DYSPNOEA [None]
